FAERS Safety Report 16963446 (Version 4)
Quarter: 2019Q4

REPORT INFORMATION
  Report Type: Spontaneous
  Country: GB (occurrence: GB)
  Receive Date: 20191025
  Receipt Date: 20191107
  Transmission Date: 20200122
  Serious: Yes (Hospitalization, Other)
  Sender: FDA-Public Use
  Company Number: GB-MYLANLABS-2019M1101689

PATIENT
  Age: 61 Year
  Sex: Male

DRUGS (3)
  1. CLOZARIL [Suspect]
     Active Substance: CLOZAPINE
     Dosage: 50 MILLIGRAM, BID
     Route: 048
     Dates: start: 201910
  2. CLOZARIL [Suspect]
     Active Substance: CLOZAPINE
     Indication: SCHIZOPHRENIA
     Dosage: 200MILLIGRAM, (50 MG MANE,150 MG NOCTE)
     Route: 048
     Dates: start: 20010701, end: 20191013
  3. KWELLS [Concomitant]
     Active Substance: SCOPOLAMINE HYDROBROMIDE
     Indication: SALIVARY HYPERSECRETION
     Dosage: 300 MICROGRAM, PM
     Route: 048

REACTIONS (7)
  - Sepsis [Recovering/Resolving]
  - Hyperthermia [Unknown]
  - Neuroleptic malignant syndrome [Unknown]
  - Respiratory failure [Not Recovered/Not Resolved]
  - Antipsychotic drug level below therapeutic [Unknown]
  - Product dose omission [Recovered/Resolved]
  - Blood creatine phosphokinase increased [Unknown]

NARRATIVE: CASE EVENT DATE: 2019
